FAERS Safety Report 11773097 (Version 2)
Quarter: 2015Q4

REPORT INFORMATION
  Report Type: Spontaneous
  Country: EC (occurrence: EC)
  Receive Date: 20151124
  Receipt Date: 20151210
  Transmission Date: 20160304
  Serious: Yes (Other)
  Sender: FDA-Public Use
  Company Number: EC-INCYTE CORPORATION-2015IN005280

PATIENT

DRUGS (1)
  1. JAKAFI [Suspect]
     Active Substance: RUXOLITINIB
     Indication: MYELOFIBROSIS
     Dosage: 15 MG, BID
     Route: 065

REACTIONS (7)
  - Anaemia [Unknown]
  - Leukocytosis [Unknown]
  - Thrombocytopenia [Unknown]
  - Neutrophil count decreased [Unknown]
  - Myelofibrosis [Unknown]
  - Thrombocytosis [Unknown]
  - Blast cell count increased [Unknown]
